FAERS Safety Report 5936203-4 (Version None)
Quarter: 2008Q4

REPORT INFORMATION
  Report Type: 
  Country: None (occurrence: None)
  Receive Date: 20081030
  Receipt Date: 20081024
  Transmission Date: 20090506
  Serious: Yes (Other)
  Sender: FDA-Public Use
  Company Number: NL-SANOFI-SYNTHELABO-A01200811237

PATIENT
  Age: 65 Year
  Sex: Female

DRUGS (9)
  1. DIAZEPAM [Concomitant]
  2. ACETAMINOPHEN W/ CODEINE [Concomitant]
  3. IMIPRAMINE [Concomitant]
  4. GLIMEPIRIDE [Concomitant]
     Route: 048
  5. METFORMIN HYDROCHLORIDE [Concomitant]
  6. DEXAMETHASONE [Concomitant]
     Dates: start: 20080826, end: 20080826
  7. ZOFRAN [Concomitant]
     Dates: start: 20080826, end: 20080826
  8. BEVACIZUMAB [Concomitant]
     Indication: COLON CANCER
     Route: 042
     Dates: start: 20080826, end: 20080826
  9. OXALIPLATIN WINTHROP [Suspect]
     Route: 042
     Dates: start: 20080826, end: 20080826

REACTIONS (4)
  - COLD SWEAT [None]
  - LARYNGOSPASM [None]
  - PALLOR [None]
  - WHEEZING [None]
